FAERS Safety Report 14080318 (Version 5)
Quarter: 2018Q2

REPORT INFORMATION
  Report Type: Spontaneous
  Country: AU (occurrence: AU)
  Receive Date: 20171012
  Receipt Date: 20180502
  Transmission Date: 20180711
  Serious: Yes (Hospitalization, Other)
  Sender: FDA-Public Use
  Company Number: AU-PFIZER INC-2017436811

PATIENT
  Age: 77 Year
  Sex: Female

DRUGS (6)
  1. DIAZEPAM. [Suspect]
     Active Substance: DIAZEPAM
     Dosage: 5 MG, AS NEEDED (NOCTE PRN)
  2. BUPRENORPHINE. [Concomitant]
     Active Substance: BUPRENORPHINE
     Dosage: 20 MCG/HOUR
     Route: 062
  3. TEMAZEPAM. [Suspect]
     Active Substance: TEMAZEPAM
     Dosage: 20 MG, DAILY (NOCTE)
  4. OXYCODONE [Suspect]
     Active Substance: OXYCODONE
     Indication: INSOMNIA
     Dosage: 5 MG, AS NEEDED (PRN)
  5. SERTRALINE [Concomitant]
     Active Substance: SERTRALINE HYDROCHLORIDE
     Dosage: 25 MG, DAILY, (A WEANING SERTRALINE DOSE)
  6. AMITRIPTYLINE [Concomitant]
     Active Substance: AMITRIPTYLINE
     Dosage: 50 MG, DAILY, (NOCTE)

REACTIONS (10)
  - Bruxism [Recovering/Resolving]
  - Drug abuse [Unknown]
  - Dysarthria [Unknown]
  - Hypersomnia [Unknown]
  - Withdrawal syndrome [Unknown]
  - Fall [Unknown]
  - Judgement impaired [Unknown]
  - Impaired reasoning [Unknown]
  - Abnormal behaviour [Unknown]
  - Anxiety [Unknown]
